FAERS Safety Report 12882023 (Version 2)
Quarter: 2016Q4

REPORT INFORMATION
  Report Type: Spontaneous
  Country: DE (occurrence: DE)
  Receive Date: 20161025
  Receipt Date: 20161027
  Transmission Date: 20170207
  Serious: Yes (Life-Threatening, Hospitalization, Other)
  Sender: FDA-Public Use
  Company Number: DE-PFIZER INC-2016475876

PATIENT
  Age: 79 Year
  Sex: Female
  Weight: 75 kg

DRUGS (7)
  1. TRAMADOL. [Interacting]
     Active Substance: TRAMADOL
     Indication: HEADACHE
     Dosage: 50 MG, AS NEEDED
     Route: 048
  2. RAMIPRIL. [Suspect]
     Active Substance: RAMIPRIL
     Dosage: 5 MG, 1X/DAY (1/2-0-0, IN THE MORNING)
  3. OMEPRAZOLE. [Concomitant]
     Active Substance: OMEPRAZOLE
     Dosage: 20 MG, 1X/DAY (1-0-0, IN THE MORNING)
  4. TRAMADOL. [Interacting]
     Active Substance: TRAMADOL
     Indication: BACK PAIN
  5. BROMAZEPAM [Concomitant]
     Active Substance: BROMAZEPAM
     Dosage: 3 MG, 1X/DAY  (0-0-0-1/2)
  6. BISOPROLOL [Interacting]
     Active Substance: BISOPROLOL
     Dosage: 5 MG, 1X/DAY (1/2-0-0, IN THE MORNING)
  7. ASPIRIN (E.C.) [Concomitant]
     Active Substance: ASPIRIN
     Dosage: 100 MG, ALTERNATE DAY (1-0-0 EVERY 2ND DAY)

REACTIONS (2)
  - Hypoglycaemia [Recovered/Resolved]
  - Drug interaction [Unknown]
